FAERS Safety Report 25800662 (Version 1)
Quarter: 2025Q3

REPORT INFORMATION
  Report Type: Spontaneous
  Country: EU (occurrence: EU)
  Receive Date: 20250915
  Receipt Date: 20250915
  Transmission Date: 20251021
  Serious: Yes (Other)
  Sender: CELLTRION
  Company Number: EU-BRISTOL-MYERS SQUIBB COMPANY-2025-119669

PATIENT

DRUGS (9)
  1. RITUXIMAB [Suspect]
     Active Substance: RITUXIMAB
     Indication: Follicular lymphoma
     Dates: start: 201810, end: 201909
  2. RITUXIMAB [Suspect]
     Active Substance: RITUXIMAB
     Dates: start: 202011, end: 202012
  3. RITUXIMAB [Suspect]
     Active Substance: RITUXIMAB
     Dates: start: 202101
  4. RITUXIMAB [Suspect]
     Active Substance: RITUXIMAB
     Dates: start: 202103, end: 202106
  5. RITUXIMAB [Suspect]
     Active Substance: RITUXIMAB
     Dates: start: 202201, end: 202205
  6. RITUXIMAB [Suspect]
     Active Substance: RITUXIMAB
     Dates: start: 201804, end: 201810
  7. LENALIDOMIDE [Suspect]
     Active Substance: LENALIDOMIDE
     Indication: Follicular lymphoma
     Dates: start: 202103, end: 202106
  8. LENALIDOMIDE [Suspect]
     Active Substance: LENALIDOMIDE
     Dates: start: 202201, end: 202205
  9. LENALIDOMIDE [Suspect]
     Active Substance: LENALIDOMIDE
     Dates: start: 202207, end: 202208

REACTIONS (4)
  - Malignant neoplasm progression [Unknown]
  - Pancytopenia [Unknown]
  - Trigeminal neuralgia [Unknown]
  - Pyrexia [Unknown]

NARRATIVE: CASE EVENT DATE: 20210701
